FAERS Safety Report 7218024-8 (Version None)
Quarter: 2011Q1

REPORT INFORMATION
  Report Type: 
  Country: None (occurrence: None)
  Receive Date: 20110110
  Receipt Date: 20101227
  Transmission Date: 20110831
  Serious: Yes (Other)
  Sender: FDA-Public Use
  Company Number: BE-WATSON-2010-16752

PATIENT
  Age: 60 Year
  Sex: Male

DRUGS (1)
  1. PRAMIPEXOLE (WATSON LABORATORIES) [Suspect]
     Indication: RESTLESS LEGS SYNDROME
     Dosage: 0.18 MG, UNKNOWN

REACTIONS (1)
  - CLUSTER HEADACHE [None]
